FAERS Safety Report 24010689 (Version 1)
Quarter: 2024Q2

REPORT INFORMATION
  Report Type: Report from Study
  Country: US (occurrence: US)
  Receive Date: 20240625
  Receipt Date: 20240625
  Transmission Date: 20240716
  Serious: Yes (Other)
  Sender: FDA-Public Use
  Company Number: US-TAKEDA-2024TUS062493

PATIENT
  Sex: Female

DRUGS (4)
  1. TEDUGLUTIDE [Suspect]
     Active Substance: TEDUGLUTIDE
     Indication: Short-bowel syndrome
     Dosage: 0.280 MILLILITER, QD
     Route: 050
     Dates: start: 20231012
  2. TEDUGLUTIDE [Suspect]
     Active Substance: TEDUGLUTIDE
     Indication: Short-bowel syndrome
     Dosage: 0.280 MILLILITER, QD
     Route: 050
     Dates: start: 20231012
  3. TEDUGLUTIDE [Suspect]
     Active Substance: TEDUGLUTIDE
     Indication: Short-bowel syndrome
     Dosage: 0.280 MILLILITER, QD
     Route: 050
     Dates: start: 20231012
  4. TEDUGLUTIDE [Suspect]
     Active Substance: TEDUGLUTIDE
     Indication: Short-bowel syndrome
     Dosage: 0.280 MILLILITER, QD
     Route: 050
     Dates: start: 20231012

REACTIONS (4)
  - Malaise [Unknown]
  - General physical health deterioration [Unknown]
  - Muscle spasms [Unknown]
  - Weight decreased [Unknown]
